FAERS Safety Report 10016732 (Version 1)
Quarter: 2014Q1

REPORT INFORMATION
  Report Type: Report from Study
  Country: US (occurrence: US)
  Receive Date: 20140318
  Receipt Date: 20140318
  Transmission Date: 20141002
  Serious: Yes (Other)
  Sender: FDA-Public Use
  Company Number: PHEH2014US005236

PATIENT
  Age: 76 Year
  Sex: Male

DRUGS (1)
  1. TOBI [Suspect]
     Dosage: 1 DF, BID
     Route: 055

REACTIONS (2)
  - Lung infection pseudomonal [Not Recovered/Not Resolved]
  - Dyspnoea [Not Recovered/Not Resolved]
